FAERS Safety Report 14550618 (Version 2)
Quarter: 2018Q3

REPORT INFORMATION
  Report Type: Report from Study
  Country: US (occurrence: US)
  Receive Date: 20180219
  Receipt Date: 20180820
  Transmission Date: 20181010
  Serious: No
  Sender: FDA-Public Use
  Company Number: US-ACADIA PHARMACEUTICALS INC.-ACA-2018-007108

PATIENT
  Age: 65 Year
  Sex: Male

DRUGS (3)
  1. NUPLAZID [Suspect]
     Active Substance: PIMAVANSERIN TARTRATE
     Indication: PARKINSON^S DISEASE PSYCHOSIS
  2. NUPLAZID [Suspect]
     Active Substance: PIMAVANSERIN TARTRATE
     Indication: DELUSION
     Dosage: 34 MG, QD
     Route: 048
     Dates: start: 20180124, end: 20180606
  3. NUPLAZID [Suspect]
     Active Substance: PIMAVANSERIN TARTRATE
     Indication: HALLUCINATION
     Dosage: 17 MG, QD
     Route: 048
     Dates: start: 20180110

REACTIONS (9)
  - Insomnia [Unknown]
  - Depression [Unknown]
  - Prescribed underdose [Unknown]
  - Anxiety [Unknown]
  - Constipation [Unknown]
  - Cold sweat [Recovered/Resolved]
  - Chills [Recovered/Resolved]
  - Dizziness [Unknown]
  - Pollakiuria [Unknown]

NARRATIVE: CASE EVENT DATE: 20180110
